FAERS Safety Report 17827861 (Version 2)
Quarter: 2020Q3

REPORT INFORMATION
  Report Type: Spontaneous
  Country: US (occurrence: US)
  Receive Date: 20200527
  Receipt Date: 20200917
  Transmission Date: 20201102
  Serious: No
  Sender: FDA-Public Use
  Company Number: US-SA-2020SA133894

PATIENT

DRUGS (1)
  1. DUPIXENT [Suspect]
     Active Substance: DUPILUMAB
     Indication: PSORIASIS
     Dosage: 300 MG, QOW
     Route: 058
     Dates: start: 20200121

REACTIONS (3)
  - Product use in unapproved indication [Unknown]
  - Alopecia [Unknown]
  - Vertigo [Unknown]

NARRATIVE: CASE EVENT DATE: 2020
